FAERS Safety Report 8357113-1 (Version None)
Quarter: 2012Q2

REPORT INFORMATION
  Report Type: 
  Country: None (occurrence: None)
  Receive Date: 20120510
  Receipt Date: 20120426
  Transmission Date: 20120825
  Serious: Yes (Hospitalization, Other)
  Sender: FDA-Public Use
  Company Number: DSA_56387_2012

PATIENT
  Sex: Female
  Weight: 99.6 kg

DRUGS (63)
  1. ELIDEL [Suspect]
     Indication: ECZEMA
     Dosage: (DF TOPICAL)
  2. PREVACID [Concomitant]
  3. MEDROL [Concomitant]
  4. TERAZOL 3 [Concomitant]
  5. TEA TREE OIL [Concomitant]
  6. LIPITOR [Concomitant]
  7. AZITHROMYCIN [Concomitant]
  8. ORAL CONTRACEPTIVE NOS [Concomitant]
  9. CLEAR EYES ACR [Concomitant]
  10. CONDYLOX [Concomitant]
  11. UREA [Concomitant]
  12. KEFLEX /00145502/ [Concomitant]
  13. BENADRYL [Concomitant]
  14. AVELOX [Concomitant]
  15. CALAMINE [Concomitant]
  16. METRONIDAZOLE [Concomitant]
  17. LEVOTHYROXINE SODIUM [Concomitant]
  18. FAMOTIDINE [Concomitant]
  19. ZOVIRAX /00587301/ [Concomitant]
  20. INTERFERON ALFA-2A [Concomitant]
  21. ALLEGRA [Concomitant]
  22. PREDNISONE [Concomitant]
  23. CORTICOSTEROID NOS [Concomitant]
  24. FLUCONAZOLE [Concomitant]
  25. XENICAL [Concomitant]
  26. TUSSIONEX /01623001/ [Concomitant]
  27. KENALOG [Concomitant]
  28. NEXIUM [Concomitant]
  29. ATARAX [Concomitant]
  30. SUPRAX /00821802/ [Concomitant]
  31. HYDROCODONE W/APAP /01554201/ [Concomitant]
  32. MAXIPEN [Concomitant]
  33. CLARITIN /00917501/ [Concomitant]
  34. CITALOPRAM HYDROBROMIDE [Concomitant]
  35. LO/OVRAL /00948701/ [Concomitant]
  36. CEPHALEXIN [Concomitant]
  37. KETEK /01548701/ [Concomitant]
  38. TRIAMCINOLONE ACETONIDE [Concomitant]
  39. PRILOSEC [Concomitant]
  40. TARGRETIN [Concomitant]
  41. SUCRALFATE [Concomitant]
  42. ALBUTEROL [Concomitant]
  43. HYDROCORTISONE [Concomitant]
  44. DERMA-SMOOTHE/FS [Concomitant]
  45. HYDROXYZINE HYDROCHLORIDE [Concomitant]
  46. FLONASE [Concomitant]
  47. METHOXSALEN [Concomitant]
  48. HYDRO-AQUIL [Concomitant]
  49. ZYRTEC [Concomitant]
  50. STRESSTABS /07504101/ [Concomitant]
  51. ACETAMINOPHEN [Concomitant]
  52. PROTOPIC [Concomitant]
  53. ALPRAZOLAM [Concomitant]
  54. INTERFERON ALFA [Concomitant]
  55. LIDEX [Concomitant]
  56. DERMA-SMOOTHE/FS [Concomitant]
  57. AMPICILLIN [Concomitant]
  58. ROCEPHIN [Concomitant]
  59. OXSORALEN-ULTRA [Concomitant]
  60. GENTAMICIN [Concomitant]
  61. ZYBAN [Concomitant]
  62. CARAFATE [Concomitant]
  63. EFFEXOR [Concomitant]

REACTIONS (70)
  - ACNE [None]
  - ANOGENITAL WARTS [None]
  - OSTEOPENIA [None]
  - LEIOMYOMA [None]
  - FURUNCLE [None]
  - WEIGHT INCREASED [None]
  - GASTROOESOPHAGEAL REFLUX DISEASE [None]
  - OCCULT BLOOD POSITIVE [None]
  - FAECAL INCONTINENCE [None]
  - LATEX ALLERGY [None]
  - SKIN CANCER [None]
  - ANAEMIA [None]
  - ABDOMINAL PAIN [None]
  - SKIN INFECTION [None]
  - JOINT RANGE OF MOTION DECREASED [None]
  - CONSTIPATION [None]
  - MYALGIA [None]
  - BLOOD IMMUNOGLOBULIN E INCREASED [None]
  - ACUTE SINUSITIS [None]
  - OBESITY [None]
  - BLOOD TRIGLYCERIDES INCREASED [None]
  - LIGAMENT SPRAIN [None]
  - DYSFUNCTIONAL UTERINE BLEEDING [None]
  - FIBULA FRACTURE [None]
  - BLOOD URINE PRESENT [None]
  - ASTHENIA [None]
  - DYSPEPSIA [None]
  - BRONCHITIS [None]
  - BLOOD GLUCOSE INCREASED [None]
  - PROCTALGIA [None]
  - IRON DEFICIENCY [None]
  - HYPOAESTHESIA [None]
  - NASOPHARYNGITIS [None]
  - MYCOSIS FUNGOIDES [None]
  - EAR PAIN [None]
  - DERMATITIS ALLERGIC [None]
  - BLOOD PRESSURE INCREASED [None]
  - PAIN IN EXTREMITY [None]
  - GENITAL HERPES [None]
  - URINARY TRACT INFECTION [None]
  - BALANCE DISORDER [None]
  - RASH PRURITIC [None]
  - INSOMNIA [None]
  - FEELING OF DESPAIR [None]
  - DYSPHAGIA [None]
  - HERNIA [None]
  - CONJUNCTIVAL PRIMARY ACQUIRED MELANOSIS [None]
  - ABSCESS [None]
  - SKIN ULCER [None]
  - BLOOD CHOLESTEROL INCREASED [None]
  - CERUMEN IMPACTION [None]
  - GAIT DISTURBANCE [None]
  - IMPAIRED GASTRIC EMPTYING [None]
  - JOINT SWELLING [None]
  - CONTUSION [None]
  - FATIGUE [None]
  - DYSLIPIDAEMIA [None]
  - RHINORRHOEA [None]
  - BLOOD ALKALINE PHOSPHATASE INCREASED [None]
  - SOCIAL AVOIDANT BEHAVIOUR [None]
  - MUSCLE TWITCHING [None]
  - MULTIPLE ALLERGIES [None]
  - FALL [None]
  - ARTHRALGIA [None]
  - RHINITIS ALLERGIC [None]
  - PAPILLOMA VIRAL INFECTION [None]
  - HAEMORRHOIDS [None]
  - EXCESSIVE EYE BLINKING [None]
  - SECRETION DISCHARGE [None]
  - RECTAL HAEMORRHAGE [None]
